FAERS Safety Report 8821421 (Version 2)
Quarter: 2013Q2

REPORT INFORMATION
  Report Type: Spontaneous
  Country: US (occurrence: US)
  Receive Date: 20121002
  Receipt Date: 20130418
  Transmission Date: 20140414
  Serious: No
  Sender: FDA-Public Use
  Company Number: US-ASTRAZENECA-2012SE49870

PATIENT
  Age: 50 Year
  Sex: Female

DRUGS (2)
  1. NEXIUM [Suspect]
     Route: 048
  2. ADVAIR [Concomitant]

REACTIONS (6)
  - Fibromyalgia [Unknown]
  - Chronic obstructive pulmonary disease [Unknown]
  - Gastrooesophageal reflux disease [Unknown]
  - Ulcer [Unknown]
  - Vomiting [Unknown]
  - Retching [Unknown]
